FAERS Safety Report 15013009 (Version 3)
Quarter: 2019Q1

REPORT INFORMATION
  Report Type: Report from Study
  Country: DE (occurrence: DE)
  Receive Date: 20180614
  Receipt Date: 20190205
  Transmission Date: 20190417
  Serious: Yes (Hospitalization)
  Sender: FDA-Public Use
  Company Number: DE-BRISTOL-MYERS SQUIBB COMPANY-BMS-2018-052869

PATIENT
  Age: 64 Year
  Sex: Male
  Weight: 73 kg

DRUGS (16)
  1. VISTAGAN                           /00844001/ [Concomitant]
     Indication: PRODUCT USED FOR UNKNOWN INDICATION
     Route: 047
     Dates: start: 20180329
  2. FUCICORT [Concomitant]
     Active Substance: BETAMETHASONE VALERATE\FUSIDIC ACID
     Indication: PRODUCT USED FOR UNKNOWN INDICATION
     Dosage: UNK
     Route: 061
     Dates: start: 20180606
  3. IBUPROFEN                          /00109205/ [Concomitant]
     Active Substance: IBUPROFEN
     Indication: PRODUCT USED FOR UNKNOWN INDICATION
     Dosage: 1800 MG, UNK
     Route: 048
     Dates: start: 20180606, end: 20180606
  4. IPILIMUMAB [Suspect]
     Active Substance: IPILIMUMAB
     Indication: NON-SMALL CELL LUNG CANCER
     Dosage: 74 MG, UNK
     Route: 042
     Dates: start: 20180110
  5. NOVALGIN                           /00169801/ [Concomitant]
     Active Substance: ACETAMINOPHEN\CAFFEINE\PROPYPHENAZONE
     Indication: PRODUCT USED FOR UNKNOWN INDICATION
     Route: 048
     Dates: start: 20180604
  6. CEFTRIAXON [Concomitant]
     Active Substance: CEFTRIAXONE
     Indication: PRODUCT USED FOR UNKNOWN INDICATION
     Dosage: 2 G, UNK
     Route: 042
     Dates: start: 20180606, end: 20180613
  7. NIVOLUMAB [Suspect]
     Active Substance: NIVOLUMAB
     Indication: NON-SMALL CELL LUNG CANCER
     Dosage: 360 MG, UNK
     Route: 042
     Dates: start: 20180110, end: 20180509
  8. CISPLATIN. [Suspect]
     Active Substance: CISPLATIN
     Indication: NON-SMALL CELL LUNG CANCER
     Dosage: 136 MG, UNK
     Route: 042
     Dates: start: 20180110
  9. PANTOPRAZOL                        /01263201/ [Concomitant]
     Active Substance: PANTOPRAZOLE
     Indication: PRODUCT USED FOR UNKNOWN INDICATION
     Dosage: 40 MG, UNK
     Route: 048
     Dates: start: 20180606
  10. SPIOLTO RESPIMAT [Concomitant]
     Active Substance: OLODATEROL HYDROCHLORIDE\TIOTROPIUM BROMIDE MONOHYDRATE
     Indication: PRODUCT USED FOR UNKNOWN INDICATION
     Dosage: 2 DF, UNK
     Route: 055
     Dates: start: 20180418
  11. CLOBEGALEN [Concomitant]
     Indication: PRODUCT USED FOR UNKNOWN INDICATION
     Dosage: UNK
     Route: 061
     Dates: start: 20180606
  12. ALFASON [Concomitant]
     Active Substance: HYDROCORTISONE BUTYRATE
     Indication: PRODUCT USED FOR UNKNOWN INDICATION
     Route: 061
     Dates: start: 20180110
  13. CLEXANE [Concomitant]
     Active Substance: ENOXAPARIN SODIUM
     Indication: PRODUCT USED FOR UNKNOWN INDICATION
     Dosage: 40 MG, UNK
     Route: 058
     Dates: start: 20180606, end: 20180613
  14. PEMETREXED DISODIUM [Suspect]
     Active Substance: PEMETREXED DISODIUM
     Indication: NON-SMALL CELL LUNG CANCER
     Dosage: 905 MG, UNK
     Route: 065
     Dates: start: 20180110
  15. FOLSAN [Concomitant]
     Active Substance: FOLIC ACID
     Indication: PRODUCT USED FOR UNKNOWN INDICATION
     Route: 048
     Dates: start: 20171220
  16. RAMIPRIL. [Concomitant]
     Active Substance: RAMIPRIL
     Indication: PRODUCT USED FOR UNKNOWN INDICATION
     Route: 048
     Dates: start: 2016

REACTIONS (3)
  - Balanoposthitis [Recovered/Resolved]
  - Urethritis [Recovered/Resolved]
  - Arthritis [Recovering/Resolving]

NARRATIVE: CASE EVENT DATE: 20180605
